FAERS Safety Report 13587830 (Version 1)
Quarter: 2017Q2

REPORT INFORMATION
  Report Type: Spontaneous
  Country: IT (occurrence: IT)
  Receive Date: 20170527
  Receipt Date: 20170527
  Transmission Date: 20170830
  Serious: Yes (Other)
  Sender: FDA-Public Use
  Company Number: IT-ROCHE-1940749

PATIENT
  Age: 44 Year
  Sex: Male

DRUGS (10)
  1. TACHIDOL [Concomitant]
     Active Substance: ACETAMINOPHEN\CODEINE PHOSPHATE
     Route: 048
  2. CLEXANE [Concomitant]
     Active Substance: ENOXAPARIN SODIUM
     Route: 058
  3. METHADONE [Concomitant]
     Active Substance: METHADONE HYDROCHLORIDE
  4. RIVOTRIL [Suspect]
     Active Substance: CLONAZEPAM
     Indication: PRODUCT USED FOR UNKNOWN INDICATION
     Dosage: 2.5 MG/ML ORAL DROPS, SOLUTION^ 10 ML BOTTLE
     Route: 048
     Dates: start: 20161116, end: 20161116
  5. PROZIN (ITALY) [Concomitant]
     Active Substance: CHLORPROMAZINE HYDROCHLORIDE
     Dosage: 25 MG COATED TABLETS^ 25 TABLETS
     Route: 048
  6. KALETRA [Concomitant]
     Active Substance: LOPINAVIR\RITONAVIR
     Dosage: 200 MG + 50 MG FILM-COATED TABLET,
     Route: 048
  7. HALDOL [Concomitant]
     Active Substance: HALOPERIDOL
     Route: 048
  8. OLANZAPINE. [Concomitant]
     Active Substance: OLANZAPINE
     Route: 048
  9. TRUVADA [Concomitant]
     Active Substance: EMTRICITABINE\TENOFOVIR DISOPROXIL FUMARATE
     Dosage: 30 FILM-COATED TABLETS IN A 200 MG/245 MG HDPE BOT
     Route: 048
  10. ALGIX [Concomitant]
     Active Substance: ETORICOXIB
     Dosage: ^60 MG FILM-COATED TABLETS^ 2 TABLETS IN AN AL/AL
     Route: 048

REACTIONS (3)
  - Sopor [Recovering/Resolving]
  - Drug use disorder [Unknown]
  - Intentional self-injury [Unknown]

NARRATIVE: CASE EVENT DATE: 20161116
